FAERS Safety Report 4374861-9 (Version None)
Quarter: 2004Q2

REPORT INFORMATION
  Report Type: 
  Country: None (occurrence: None)
  Receive Date: 20040604
  Receipt Date: 20040521
  Transmission Date: 20050107
  Serious: Yes (Hospitalization)
  Sender: FDA-Public Use
  Company Number: 2004-0007091

PATIENT
  Age: 47 Year
  Sex: Female
  Weight: 39 kg

DRUGS (4)
  1. VIREAD [Suspect]
     Indication: HIV INFECTION
     Dosage: 300 MG, ORAL
     Route: 048
     Dates: start: 20030217, end: 20030902
  2. INDINAVIR (INDINAVIR) (400) [Suspect]
     Indication: HIV INFECTION
     Dosage: 400 , 2 IN 1 D, ORAL
     Route: 048
     Dates: start: 20030217
  3. RITONOVIR (RITONAVIR) (100) [Concomitant]
  4. EPIVIR (LAMIVUDINE) (150) [Concomitant]

REACTIONS (2)
  - NEPHROLITHIASIS [None]
  - RENAL FAILURE [None]
